FAERS Safety Report 7314477-5 (Version None)
Quarter: 2011Q1

REPORT INFORMATION
  Report Type: 
  Country: None (occurrence: None)
  Receive Date: 20110225
  Receipt Date: 20101029
  Transmission Date: 20110831
  Serious: No
  Sender: FDA-Public Use
  Company Number: US-MYLANLABS-2010S1016489

PATIENT
  Age: 33 Year
  Sex: Male
  Weight: 70.31 kg

DRUGS (2)
  1. AMNESTEEM [Suspect]
     Indication: ACNE
     Route: 048
     Dates: start: 20100505, end: 20100601
  2. AMNESTEEM [Suspect]
     Route: 048
     Dates: start: 20100601, end: 20100808

REACTIONS (6)
  - VISION BLURRED [None]
  - OCULAR HYPERAEMIA [None]
  - BLOOD CHOLESTEROL INCREASED [None]
  - BLOOD TRIGLYCERIDES INCREASED [None]
  - LOW DENSITY LIPOPROTEIN INCREASED [None]
  - DRY EYE [None]
